FAERS Safety Report 7006599-3 (Version None)
Quarter: 2010Q3

REPORT INFORMATION
  Report Type: 
  Country: None (occurrence: None)
  Receive Date: 20100921
  Receipt Date: 20100921
  Transmission Date: 20110219
  Serious: Yes (Life-Threatening, Other)
  Sender: FDA-Public Use
  Company Number: None

PATIENT
  Sex: Female

DRUGS (2)
  1. AVELOX [Suspect]
     Indication: PNEUMONIA
     Dosage: 400, NS 0.9% 250ML 1 DAY IV
     Route: 042
     Dates: start: 20091010, end: 20091010
  2. AVELOX [Suspect]
     Dosage: 1 TAB DAILY FOR 10 DAYS PO
     Route: 048
     Dates: start: 20091011, end: 20091021

REACTIONS (8)
  - ABDOMINAL DISTENSION [None]
  - COLITIS ULCERATIVE [None]
  - DYSGEUSIA [None]
  - FLATULENCE [None]
  - HAEMORRHAGE [None]
  - OPEN WOUND [None]
  - ORAL DISORDER [None]
  - PROCTITIS [None]
